FAERS Safety Report 5403695-9 (Version None)
Quarter: 2007Q3

REPORT INFORMATION
  Report Type: 
  Country: None (occurrence: None)
  Receive Date: 20070713
  Receipt Date: 20070406
  Transmission Date: 20080115
  Serious: Yes (Life-Threatening, Hospitalization)
  Sender: FDA-Public Use
  Company Number: REM_00341_2007

PATIENT
  Age: 45 Year
  Sex: Female
  Weight: 56.4 kg

DRUGS (1)
  1. REMODULIN [Suspect]
     Indication: PULMONARY HYPERTENSION
     Dosage: 96 NG/KG/MIN (0.096 UG/KG,1 IN 1 MIN),INTRAVENOUS
     Route: 042

REACTIONS (2)
  - CATHETER RELATED INFECTION [None]
  - CENTRAL LINE INFECTION [None]
